FAERS Safety Report 6148742-4 (Version None)
Quarter: 2009Q2

REPORT INFORMATION
  Report Type: 
  Country: None (occurrence: None)
  Receive Date: 20090406
  Receipt Date: 20090406
  Transmission Date: 20091009
  Serious: Yes (Hospitalization)
  Sender: FDA-Public Use
  Company Number: None

PATIENT
  Age: 55 Year
  Sex: Male
  Weight: 102.0593 kg

DRUGS (1)
  1. DAPTOMYCIN 500MG CUBIST PHARMACEUTICAL [Suspect]
     Indication: INFECTED SKIN ULCER
     Dosage: 600MG DAILY THIS WAS FIRST INTRAVESICA
     Route: 043
     Dates: start: 20090301, end: 20090331

REACTIONS (6)
  - BLOOD PRESSURE DECREASED [None]
  - DYSPNOEA [None]
  - HYPERHIDROSIS [None]
  - HYPOAESTHESIA ORAL [None]
  - NAUSEA [None]
  - UNRESPONSIVE TO STIMULI [None]
